APPROVED DRUG PRODUCT: KEPPRA
Active Ingredient: LEVETIRACETAM
Strength: 100MG/ML
Dosage Form/Route: SOLUTION;ORAL
Application: N021505 | Product #001 | TE Code: AA
Applicant: UCB INC
Approved: Jul 15, 2003 | RLD: Yes | RS: Yes | Type: RX